FAERS Safety Report 18998319 (Version 1)
Quarter: 2021Q1

REPORT INFORMATION
  Report Type: Spontaneous
  Country: US (occurrence: US)
  Receive Date: 20210311
  Receipt Date: 20210311
  Transmission Date: 20210420
  Serious: No
  Sender: FDA-Public Use
  Company Number: US-CELGENEUS-USA-20210301120

PATIENT
  Sex: Male
  Weight: 83.08 kg

DRUGS (1)
  1. REVLIMID [Suspect]
     Active Substance: LENALIDOMIDE
     Indication: PLASMA CELL MYELOMA
     Dosage: 5 MILLIGRAM
     Route: 048
     Dates: start: 20210206

REACTIONS (4)
  - Eating disorder [Unknown]
  - Influenza like illness [Unknown]
  - Renal disorder [Unknown]
  - Nausea [Unknown]

NARRATIVE: CASE EVENT DATE: 2021
